FAERS Safety Report 17540815 (Version 2)
Quarter: 2020Q1

REPORT INFORMATION
  Report Type: Spontaneous
  Country: FR (occurrence: FR)
  Receive Date: 20200313
  Receipt Date: 20200316
  Transmission Date: 20200409
  Serious: Yes (Other)
  Sender: FDA-Public Use
  Company Number: FR-BAXTER-2020BAX005496

PATIENT
  Age: 51 Year
  Sex: Female

DRUGS (2)
  1. HOLOXAN 2000 MG, POUDRE POUR USAGE PARENT?RAL [Suspect]
     Active Substance: IFOSFAMIDE
     Indication: SARCOMA
     Route: 041
     Dates: start: 20200213, end: 20200214
  2. DOXIL [Suspect]
     Active Substance: DOXORUBICIN HYDROCHLORIDE
     Indication: SARCOMA
     Route: 041
     Dates: start: 20200213, end: 20200214

REACTIONS (3)
  - Hypertension [Recovered/Resolved]
  - Anaphylactoid reaction [Recovered/Resolved]
  - Dyspnoea [Recovered/Resolved]

NARRATIVE: CASE EVENT DATE: 20200214
